FAERS Safety Report 16164886 (Version 3)
Quarter: 2020Q2

REPORT INFORMATION
  Report Type: Report from Study
  Country: None (occurrence: US)
  Receive Date: 20190405
  Receipt Date: 20200526
  Transmission Date: 20200713
  Serious: Yes (Other)
  Sender: FDA-Public Use
  Company Number: US-ABBVIE-19K-163-2731247-00

PATIENT
  Age: 46 Year
  Sex: Female
  Weight: 74.91 kg

DRUGS (5)
  1. HUMIRA [Suspect]
     Active Substance: ADALIMUMAB
     Indication: HIDRADENITIS
     Route: 058
     Dates: start: 201811, end: 20190324
  2. ALDACTONE [Concomitant]
     Active Substance: SPIRONOLACTONE
     Indication: BLOOD POTASSIUM DECREASED
  3. SYNTHROID [Concomitant]
     Active Substance: LEVOTHYROXINE SODIUM
     Indication: THYROID DISORDER
  4. ALDACTONE [Concomitant]
     Active Substance: SPIRONOLACTONE
     Indication: HORMONE THERAPY
  5. HUMIRA [Suspect]
     Active Substance: ADALIMUMAB
     Indication: RHEUMATOID ARTHRITIS

REACTIONS (5)
  - Aspartate aminotransferase increased [Not Recovered/Not Resolved]
  - Alanine aminotransferase increased [Not Recovered/Not Resolved]
  - Prothrombin time prolonged [Not Recovered/Not Resolved]
  - Drug-induced liver injury [Unknown]
  - Headache [Recovered/Resolved]

NARRATIVE: CASE EVENT DATE: 201812
